FAERS Safety Report 24085538 (Version 1)
Quarter: 2024Q3

REPORT INFORMATION
  Report Type: Spontaneous
  Country: FR (occurrence: None)
  Receive Date: 20240712
  Receipt Date: 20240712
  Transmission Date: 20241016
  Serious: Yes (Hospitalization, Other)
  Sender: ASTRAZENECA
  Company Number: 2024A159369

PATIENT
  Age: 60 Year
  Sex: Female

DRUGS (1)
  1. DURVALUMAB [Suspect]
     Active Substance: DURVALUMAB
     Indication: Adenosquamous cell lung cancer
     Dosage: 10 MG/KG Q2W
     Dates: start: 20211115, end: 20221201

REACTIONS (8)
  - Anaemia [Unknown]
  - Radiation pneumonitis [Unknown]
  - Oesophagitis [Unknown]
  - Radiation oesophagitis [Unknown]
  - Asthenia [Unknown]
  - Arthralgia [Unknown]
  - Hypothyroidism [Unknown]
  - Alopecia [Unknown]
